FAERS Safety Report 8503502-1 (Version None)
Quarter: 2012Q3

REPORT INFORMATION
  Report Type: 
  Country: None (occurrence: None)
  Receive Date: 20120711
  Receipt Date: 20120703
  Transmission Date: 20120928
  Serious: Yes (Hospitalization)
  Sender: FDA-Public Use
  Company Number: DE-GLAXOSMITHKLINE-B0813683A

PATIENT
  Age: 46 Year
  Sex: Female
  Weight: 57 kg

DRUGS (5)
  1. BLINDED TRIAL MEDICATION [Suspect]
     Indication: OVARIAN CANCER RECURRENT
     Dosage: 400MG PER DAY
     Route: 048
     Dates: start: 20120514
  2. CIPROFLOXACIN [Concomitant]
     Dosage: 400MG PER DAY
     Route: 042
     Dates: start: 20120702
  3. PANTOPRAZOLE [Concomitant]
     Indication: DYSPEPSIA
     Dosage: 40MG PER DAY
     Route: 048
     Dates: start: 20120702
  4. FRAGMIN [Concomitant]
     Indication: THROMBOSIS PROPHYLAXIS
     Route: 058
     Dates: start: 20120702
  5. TOPOTECAN [Suspect]
     Indication: OVARIAN CANCER RECURRENT
     Dosage: 1.25MG THREE TIMES PER WEEK
     Route: 042
     Dates: start: 20120514

REACTIONS (2)
  - THROMBOCYTOSIS [None]
  - ASCITES [None]
